FAERS Safety Report 5735934-9 (Version None)
Quarter: 2008Q2

REPORT INFORMATION
  Report Type: 
  Country: None (occurrence: None)
  Receive Date: 20080509
  Receipt Date: 20080429
  Transmission Date: 20081010
  Serious: Yes (Disabling)
  Sender: FDA-Public Use
  Company Number: APP200800117

PATIENT
  Sex: Male

DRUGS (4)
  1. SENSORCAINE-MPF WITH EPINEPHRINE HYDROCHLORIDE [Suspect]
     Indication: MUSCULOSKELETAL PAIN
     Dosage: CONTINUOUS VIA PAIN PUMP INTO SHOULDER
     Dates: start: 20000215
  2. XYLOCAINE [Suspect]
     Indication: MUSCULOSKELETAL PAIN
     Dosage: 100 ML
     Dates: start: 20000216
  3. MITEK THERMAL PROBE [Suspect]
     Indication: SURGERY
     Dates: start: 20000215
  4. DONJOY PAIN PUMP [Suspect]
     Indication: MUSCULOSKELETAL PAIN
     Dates: start: 20000215

REACTIONS (3)
  - ARTHROPATHY [None]
  - CHONDROLYSIS [None]
  - MUSCULOSKELETAL PAIN [None]
